FAERS Safety Report 18360323 (Version 1)
Quarter: 2020Q4

REPORT INFORMATION
  Report Type: Spontaneous
  Country: FR (occurrence: FR)
  Receive Date: 20201008
  Receipt Date: 20201008
  Transmission Date: 20210114
  Serious: Yes (Hospitalization, Other)
  Sender: FDA-Public Use
  Company Number: FR-MYLANLABS-2020M1084406

PATIENT
  Age: 46 Year
  Sex: Female

DRUGS (4)
  1. ESTRADIOL. [Suspect]
     Active Substance: ESTRADIOL
     Indication: PRODUCT USED FOR UNKNOWN INDICATION
     Dosage: UNK
  2. ESTROGEL [Suspect]
     Active Substance: ESTRADIOL
     Indication: HORMONE THERAPY
     Dosage: UNK
  3. CYPROTERONE [Suspect]
     Active Substance: CYPROTERONE
     Indication: ANDROGENETIC ALOPECIA
     Dosage: UNK
     Route: 048
  4. CYPROTERONE [Suspect]
     Active Substance: CYPROTERONE
     Indication: HORMONE REPLACEMENT THERAPY

REACTIONS (3)
  - Paraesthesia [Not Recovered/Not Resolved]
  - Ischaemic stroke [Not Recovered/Not Resolved]
  - Meningioma [Not Recovered/Not Resolved]
